FAERS Safety Report 21141382 (Version 4)
Quarter: 2022Q3

REPORT INFORMATION
  Report Type: Report from Study
  Country: IE (occurrence: IE)
  Receive Date: 20220728
  Receipt Date: 20220825
  Transmission Date: 20221027
  Serious: Yes (Hospitalization)
  Sender: FDA-Public Use
  Company Number: IE-ABBVIE-22K-229-4428493-00

PATIENT
  Age: 63 Year
  Sex: Male

DRUGS (24)
  1. CARBIDOPA\LEVODOPA [Suspect]
     Active Substance: CARBIDOPA\LEVODOPA
     Indication: Parkinson^s disease
     Dosage: 1 CASSETTE CONTINUOUS?20 MG/ML 5 MG/ML
     Route: 050
     Dates: start: 20220530, end: 2022
  2. CARBIDOPA\LEVODOPA [Suspect]
     Active Substance: CARBIDOPA\LEVODOPA
     Dosage: CONTINUOUS RATE 2.4ML; EXTRA DOSE 0.7ML
     Route: 050
     Dates: start: 2022, end: 2022
  3. CARBIDOPA\LEVODOPA [Suspect]
     Active Substance: CARBIDOPA\LEVODOPA
     Dosage: CONTINUOUS RATE 2.6ML/HR; EXTRA DOSE 0.9ML
     Route: 050
     Dates: start: 2022, end: 20220614
  4. CARBIDOPA\LEVODOPA [Suspect]
     Active Substance: CARBIDOPA\LEVODOPA
     Dosage: CONTINUOUS RATE 2.7ML/HR
     Route: 050
     Dates: start: 20220614, end: 20220620
  5. CARBIDOPA\LEVODOPA [Suspect]
     Active Substance: CARBIDOPA\LEVODOPA
     Dosage: CONTINUOUS DOSE 2.9ML/HR AND EXTRA DOSE TO 1.1ML
     Route: 050
     Dates: start: 20220620, end: 20220627
  6. CARBIDOPA\LEVODOPA [Suspect]
     Active Substance: CARBIDOPA\LEVODOPA
     Dosage: CONTINUOUS DOSE TO 3.1ML/HR AND EXTRA DOSE TO 1.3ML/HR
     Route: 050
     Dates: start: 20220627, end: 20220704
  7. CARBIDOPA\LEVODOPA [Suspect]
     Active Substance: CARBIDOPA\LEVODOPA
     Dosage: CONTINUOUS RATE 3.2ML/HR; EXTRA DOSE 1.5ML
     Route: 050
     Dates: start: 20220704, end: 20220707
  8. CARBIDOPA\LEVODOPA [Suspect]
     Active Substance: CARBIDOPA\LEVODOPA
     Dosage: MORNING DOSE INCREASED TO 11.5 ML?CONTINUOUS
     Route: 050
     Dates: start: 20220707, end: 20220714
  9. CARBIDOPA\LEVODOPA [Suspect]
     Active Substance: CARBIDOPA\LEVODOPA
     Dosage: MORNING DOSE INCREASED TO 12 ML CONTINUES
     Route: 050
     Dates: start: 20220714, end: 2022
  10. CARBIDOPA\LEVODOPA [Suspect]
     Active Substance: CARBIDOPA\LEVODOPA
     Dosage: CONTINUOUS RATE 3.4ML/HR?FREQUENCY: CONTINUOUS
     Route: 050
     Dates: start: 2022, end: 20220803
  11. CARBIDOPA\LEVODOPA [Suspect]
     Active Substance: CARBIDOPA\LEVODOPA
     Route: 050
     Dates: start: 20220803, end: 202208
  12. CARBIDOPA\LEVODOPA [Suspect]
     Active Substance: CARBIDOPA\LEVODOPA
     Dosage: CONTINUOUS RATE 3.6 ML/H/CONTINUOUS
     Route: 050
     Dates: start: 202208, end: 202208
  13. CARBIDOPA\LEVODOPA [Suspect]
     Active Substance: CARBIDOPA\LEVODOPA
     Dosage: CONTINUOUS DOSE 3.7ML/PH; EXTRA DOSE 1.6ML/PH
     Route: 050
     Dates: start: 20220823
  14. CARBIDOPA\LEVODOPA [Concomitant]
     Active Substance: CARBIDOPA\LEVODOPA
     Indication: Product used for unknown indication
     Dosage: 8AM,10.30,13.30,16.30,19.30 ; 100 MG ?AS PER PRESCRIPTION
     Route: 050
  15. OMEPRAZOLE [Concomitant]
     Active Substance: OMEPRAZOLE
     Indication: Product used for unknown indication
     Route: 050
  16. LECALPIN [Concomitant]
     Indication: Product used for unknown indication
     Route: 050
  17. PRAMIPEXOLE [Concomitant]
     Active Substance: PRAMIPEXOLE
     Indication: Product used for unknown indication
     Dosage: 1.05 MG
     Route: 050
  18. LOSARTAN [Concomitant]
     Active Substance: LOSARTAN
     Indication: Product used for unknown indication
     Route: 050
  19. VITAMIN D [Concomitant]
     Active Substance: VITAMIN D NOS
     Indication: Product used for unknown indication
     Dosage: 12.5 MG
     Route: 050
  20. CARBOMER [Concomitant]
     Active Substance: CARBOMER
     Indication: Product used for unknown indication
     Route: 050
  21. RASAGILINE [Concomitant]
     Active Substance: RASAGILINE
     Indication: Product used for unknown indication
     Route: 050
  22. ROSUVASTATIN [Concomitant]
     Active Substance: ROSUVASTATIN
     Indication: Product used for unknown indication
     Route: 050
  23. RIVOTRIL [Concomitant]
     Active Substance: CLONAZEPAM
     Indication: Product used for unknown indication
     Dosage: 0.5 MG
     Route: 050
  24. SINEMET CR [Concomitant]
     Active Substance: CARBIDOPA\LEVODOPA
     Indication: Product used for unknown indication
     Route: 065

REACTIONS (16)
  - Parkinson^s disease [Recovered/Resolved]
  - Reduced facial expression [Recovered/Resolved]
  - Speech disorder [Recovered/Resolved]
  - Faecal volume decreased [Recovered/Resolved]
  - Pollakiuria [Recovered/Resolved]
  - Mobility decreased [Not Recovered/Not Resolved]
  - Restlessness [Recovered/Resolved]
  - Malaise [Recovered/Resolved]
  - On and off phenomenon [Recovered/Resolved]
  - Therapeutic product effect incomplete [Recovered/Resolved]
  - Dyskinesia [Recovered/Resolved]
  - Bradykinesia [Not Recovered/Not Resolved]
  - Freezing phenomenon [Not Recovered/Not Resolved]
  - Gait disturbance [Not Recovered/Not Resolved]
  - Therapeutic product effect decreased [Not Recovered/Not Resolved]
  - Dyskinesia [Not Recovered/Not Resolved]

NARRATIVE: CASE EVENT DATE: 20220101
